FAERS Safety Report 24177933 (Version 1)
Quarter: 2024Q3

REPORT INFORMATION
  Report Type: Report from Study
  Country: IT (occurrence: IT)
  Receive Date: 20240806
  Receipt Date: 20240806
  Transmission Date: 20241016
  Serious: Yes (Other)
  Sender: EMD SERONO INC
  Company Number: None

PATIENT
  Age: 73 Year
  Sex: Female

DRUGS (1)
  1. AVELUMAB [Suspect]
     Active Substance: AVELUMAB
     Indication: Bladder cancer stage IV
     Dosage: 800 MG CYCLICAL ADMINISTRATION
     Route: 042
     Dates: start: 20240408

REACTIONS (1)
  - Hypercreatininaemia [Unknown]

NARRATIVE: CASE EVENT DATE: 20240419
